FAERS Safety Report 7009415-9 (Version None)
Quarter: 2010Q3

REPORT INFORMATION
  Report Type: 
  Country: None (occurrence: None)
  Receive Date: 20100923
  Receipt Date: 20100920
  Transmission Date: 20110219
  Serious: Yes (Hospitalization)
  Sender: FDA-Public Use
  Company Number: IT-BAYER-201040155GPV

PATIENT
  Age: 34 Year
  Sex: Male

DRUGS (2)
  1. ASPIRIN [Suspect]
     Indication: BACK PAIN
     Route: 048
     Dates: start: 20100912, end: 20100914
  2. AULIN [Suspect]
     Indication: BACK PAIN
     Route: 048
     Dates: start: 20100906, end: 20100911

REACTIONS (5)
  - GASTRIC ULCER [None]
  - GASTROINTESTINAL MUCOSAL DISORDER [None]
  - HAEMORRHAGE [None]
  - JOINT INJURY [None]
  - MELAENA [None]
